FAERS Safety Report 18245846 (Version 1)
Quarter: 2020Q3

REPORT INFORMATION
  Report Type: Spontaneous
  Country: US (occurrence: US)
  Receive Date: 20200909
  Receipt Date: 20200909
  Transmission Date: 20201103
  Serious: No
  Sender: FDA-Public Use
  Company Number: US-BRISTOL-MYERS SQUIBB COMPANY-BMS-2020-072429

PATIENT
  Sex: Male

DRUGS (1)
  1. COUMADIN [Suspect]
     Active Substance: WARFARIN SODIUM
     Indication: CARDIAC PACEMAKER INSERTION
     Dosage: USING FOR ABOUT 20 YEARS, 5 MG TABLETS DAILY MOST OF THE TIME, BUT SOMETIMES THE DOSE WAS LOWERED
     Route: 065

REACTIONS (1)
  - Laboratory test abnormal [Unknown]
